FAERS Safety Report 9574772 (Version 2)
Quarter: 2013Q4

REPORT INFORMATION
  Report Type: Spontaneous
  Country: CA (occurrence: CA)
  Receive Date: 20131001
  Receipt Date: 20131016
  Transmission Date: 20140711
  Serious: Yes (Death)
  Sender: FDA-Public Use
  Company Number: CA-ELI_LILLY_AND_COMPANY-CA201309009118

PATIENT
  Age: 63 Year
  Sex: Female
  Weight: 100 kg

DRUGS (16)
  1. ALIMTA [Suspect]
     Indication: LUNG NEOPLASM MALIGNANT
     Dosage: 500 MG/M2, CYCLICAL
     Route: 042
     Dates: start: 20101210, end: 20120607
  2. FOLIC ACID [Concomitant]
     Dosage: 1 MG, UNKNOWN
     Route: 048
     Dates: start: 201012
  3. VITAMIN B12 [Concomitant]
     Dosage: 1000 UG, UNKNOWN
     Route: 030
     Dates: start: 201012
  4. SLOW K [Concomitant]
  5. ASA [Concomitant]
     Dosage: 81 MG, UNKNOWN
  6. NEXIUM [Concomitant]
  7. IBUPROFEN [Concomitant]
  8. CALCIUM [Concomitant]
  9. LACTULOSE [Concomitant]
  10. ONDASETRON [Concomitant]
  11. HALDOL [Concomitant]
  12. HYDROMORPHONE [Concomitant]
  13. GABAPENTIN [Concomitant]
  14. LASIX [Concomitant]
  15. FENTANYL [Concomitant]
  16. DECADRON                           /00016001/ [Concomitant]
     Dosage: 4 MG, UNKNOWN

REACTIONS (4)
  - Malignant neoplasm progression [Fatal]
  - Generalised oedema [Not Recovered/Not Resolved]
  - Asthenia [Unknown]
  - Pain [Unknown]
